FAERS Safety Report 18358222 (Version 3)
Quarter: 2021Q3

REPORT INFORMATION
  Report Type: Report from Study
  Country: JP (occurrence: JP)
  Receive Date: 20201007
  Receipt Date: 20210708
  Transmission Date: 20211014
  Serious: Yes (Other)
  Sender: FDA-Public Use
  Company Number: JP-ROCHE-2667649

PATIENT
  Age: 68 Year
  Sex: Female
  Weight: 52 kg

DRUGS (13)
  1. IRINOTECAN HYDROCHLORIDE HYDRATE [Concomitant]
     Active Substance: IRINOTECAN HYDROCHLORIDE
     Dosage: DAY1
     Route: 041
     Dates: start: 20200824, end: 20201116
  2. CAPECITABINE. [Suspect]
     Active Substance: CAPECITABINE
     Indication: RECTAL CANCER
     Dosage: DAY1?15, MOST RECENT DOSE ON 03/AUG/2020
     Route: 048
     Dates: start: 20200803
  3. BEVACIZUMAB. [Suspect]
     Active Substance: BEVACIZUMAB
     Dosage: DAY1
     Route: 041
     Dates: start: 20200824
  4. IRINOTECAN HYDROCHLORIDE HYDRATE [Concomitant]
     Active Substance: IRINOTECAN HYDROCHLORIDE
     Indication: RECTAL CANCER
     Dosage: DAY1
     Route: 041
     Dates: start: 20200803, end: 20200803
  5. OXALIPLATIN. [Concomitant]
     Active Substance: OXALIPLATIN
     Dosage: DAY1
     Route: 041
     Dates: start: 20200824, end: 20201116
  6. APREPITANT. [Concomitant]
     Active Substance: APREPITANT
     Dosage: DAY2?3
     Route: 048
     Dates: start: 20200804, end: 20201118
  7. CAPECITABINE. [Suspect]
     Active Substance: CAPECITABINE
     Dosage: DAY1?15, MOST RECENT DOSE ON 21/DEC/2020
     Route: 048
     Dates: start: 20200824
  8. OXALIPLATIN. [Concomitant]
     Active Substance: OXALIPLATIN
     Indication: RECTAL CANCER
     Dosage: DAY1
     Route: 041
     Dates: start: 20200803, end: 20200803
  9. DEXAMETHASONE SODIUM PHOSPHATE. [Concomitant]
     Active Substance: DEXAMETHASONE SODIUM PHOSPHATE
     Dosage: DAY1
     Route: 042
     Dates: start: 20200803, end: 20201116
  10. APREPITANT. [Concomitant]
     Active Substance: APREPITANT
     Dosage: DAY1
     Route: 048
     Dates: start: 20200803
  11. BEVACIZUMAB. [Suspect]
     Active Substance: BEVACIZUMAB
     Indication: RECTAL CANCER
     Dosage: DAY1, MOST RECENT DOSE ON 07/DEC/2020
     Route: 041
     Dates: start: 20200803
  12. PALONOSETRON HYDROCHLORIDE. [Concomitant]
     Active Substance: PALONOSETRON HYDROCHLORIDE
     Dosage: DAY1
     Route: 042
     Dates: start: 20200803, end: 20201116
  13. DEXAMETHASONE. [Concomitant]
     Active Substance: DEXAMETHASONE
     Dosage: DAY2?4
     Route: 048
     Dates: start: 20200804, end: 20201119

REACTIONS (2)
  - Embolism venous [Recovered/Resolved]
  - Neutrophil count decreased [Recovered/Resolved]

NARRATIVE: CASE EVENT DATE: 20200817
